FAERS Safety Report 4666926-9 (Version None)
Quarter: 2005Q2

REPORT INFORMATION
  Report Type: 
  Country: None (occurrence: None)
  Receive Date: 20050518
  Receipt Date: 20040924
  Transmission Date: 20051028
  Serious: Yes (Other)
  Sender: FDA-Public Use
  Company Number: 2004224725US

PATIENT
  Age: 26 Year
  Sex: Female
  Weight: 87.5 kg

DRUGS (2)
  1. DEPO-PROVERA [Suspect]
     Dosage: SEE IMAGE
     Dates: start: 20031104, end: 20031104
  2. DEPO-PROVERA [Suspect]
     Dosage: SEE IMAGE
     Dates: start: 20040712, end: 20040712

REACTIONS (1)
  - UNINTENDED PREGNANCY [None]
